FAERS Safety Report 13091370 (Version 2)
Quarter: 2017Q2

REPORT INFORMATION
  Report Type: Spontaneous
  Country: US (occurrence: US)
  Receive Date: 20170106
  Receipt Date: 20170502
  Transmission Date: 20170830
  Serious: Yes (Other)
  Sender: FDA-Public Use
  Company Number: US-AMGEN-USASP2017000675

PATIENT
  Age: 63 Year
  Sex: Female

DRUGS (1)
  1. PROLIA [Suspect]
     Active Substance: DENOSUMAB
     Indication: OSTEOPOROSIS POSTMENOPAUSAL
     Dosage: 60 MG, Q6MO
     Route: 065
     Dates: start: 20140717

REACTIONS (6)
  - Atypical mycobacterial infection [Unknown]
  - Immunodeficiency [Unknown]
  - Pneumonia [Recovered/Resolved]
  - Mycobacterium tuberculosis complex test positive [Unknown]
  - Malaise [Unknown]
  - Mycobacterium avium complex infection [Unknown]
